FAERS Safety Report 5008861-2 (Version None)
Quarter: 2006Q2

REPORT INFORMATION
  Report Type: 
  Country: None (occurrence: None)
  Receive Date: 20060519
  Receipt Date: 20060505
  Transmission Date: 20061013
  Serious: Yes (Death)
  Sender: FDA-Public Use
  Company Number: 2006S1004071

PATIENT
  Age: 74 Year
  Sex: Male

DRUGS (7)
  1. CLOZAPINE [Suspect]
     Dosage: 12.5 MG; QD; ORAL
     Route: 048
     Dates: end: 20060101
  2. RIVASTIGMINE TARTRATE [Concomitant]
  3. RANITIDINE [Concomitant]
  4. TRIAMTERENE [Concomitant]
  5. POTASSIUM [Concomitant]
  6. LOVASTATIN [Concomitant]
  7. MORPHINE SULFATE [Concomitant]

REACTIONS (1)
  - DEATH [None]
